FAERS Safety Report 14274352 (Version 1)
Quarter: 2017Q4

REPORT INFORMATION
  Report Type: Spontaneous
  Country: US (occurrence: US)
  Receive Date: 20171212
  Receipt Date: 20171212
  Transmission Date: 20180321
  Serious: Yes (Hospitalization)
  Sender: FDA-Public Use
  Company Number: None

PATIENT

DRUGS (1)
  1. MARCAINE SPINAL [Suspect]
     Active Substance: BUPIVACAINE HYDROCHLORIDE
     Indication: SURGERY
     Dosage: ?          OTHER FREQUENCY:ONCE;?
     Route: 037
     Dates: start: 20171212, end: 20171212

REACTIONS (1)
  - Drug ineffective [None]

NARRATIVE: CASE EVENT DATE: 20171212
